FAERS Safety Report 20778170 (Version 1)
Quarter: 2022Q2

REPORT INFORMATION
  Report Type: Report from Study
  Country: HU (occurrence: HU)
  Receive Date: 20220503
  Receipt Date: 20220503
  Transmission Date: 20220721
  Serious: No
  Sender: FDA-Public Use
  Company Number: HU-KARYOPHARM-2022KPT000477

PATIENT
  Age: 64 Year
  Sex: Female

DRUGS (3)
  1. SELINEXOR [Suspect]
     Active Substance: SELINEXOR
     Indication: Plasma cell myeloma
     Dosage: UNK
     Route: 048
     Dates: start: 20210222
  2. VELCADE [Concomitant]
     Active Substance: BORTEZOMIB
     Indication: Plasma cell myeloma
     Dosage: UNK
     Dates: start: 20210222
  3. DEXAMETHASONE [Concomitant]
     Active Substance: DEXAMETHASONE
     Indication: Plasma cell myeloma
     Dosage: UNK
     Dates: start: 20210222

REACTIONS (3)
  - Weight increased [Unknown]
  - Visual impairment [Unknown]
  - Nausea [Unknown]

NARRATIVE: CASE EVENT DATE: 20210101
